FAERS Safety Report 9866960 (Version 1)
Quarter: 2014Q1

REPORT INFORMATION
  Report Type: Spontaneous
  Country: US (occurrence: US)
  Receive Date: 20140204
  Receipt Date: 20140204
  Transmission Date: 20141002
  Serious: No
  Sender: FDA-Public Use
  Company Number: US-PFIZER INC-2014027393

PATIENT
  Sex: Female

DRUGS (15)
  1. LYRICA [Suspect]
     Dosage: 50 MG, 3X/DAY
     Route: 048
  2. ASA [Concomitant]
     Dosage: 81 MG, UNK
  3. BIOTIN [Concomitant]
     Dosage: UNK
  4. CALCIUM [Concomitant]
     Dosage: 600UNK, UNK
  5. LEVOCETIRIZINE [Concomitant]
     Dosage: 5 MG, UNK
  6. LISINOPRIL [Concomitant]
     Dosage: 20 MG, UNK
  7. OXYBUTYNIN [Concomitant]
     Dosage: 5 MG, UNK
  8. TRAZODONE [Concomitant]
     Dosage: 50 MG, UNK
  9. TRIAMTERENE / HYDROCHLOROTHIAZIDE [Concomitant]
     Dosage: TRIAMTERENE 37.5/HYDROCHLOROTHIAZIDE 25
  10. VITAMIN B12 [Concomitant]
     Dosage: UNK
  11. VITAMIN C [Concomitant]
     Dosage: UNK
  12. VITAMIN D3 [Concomitant]
     Dosage: UNK
  13. VITAMIN B6 [Concomitant]
     Dosage: UNK
  14. LOTRISONE [Concomitant]
     Dosage: UNK
     Route: 061
  15. MULTIVITAMINS [Concomitant]

REACTIONS (1)
  - Drug effect incomplete [Unknown]
